FAERS Safety Report 9412889 (Version 1)
Quarter: 2013Q3

REPORT INFORMATION
  Report Type: Report from Study
  Country: US (occurrence: US)
  Receive Date: 20130722
  Receipt Date: 20130722
  Transmission Date: 20140515
  Serious: Yes (Hospitalization)
  Sender: FDA-Public Use
  Company Number: US-ABBOTT-13P-163-1119616-00

PATIENT
  Age: 24 Year
  Sex: Female

DRUGS (3)
  1. HUMIRA [Suspect]
     Indication: CROHN^S DISEASE
     Dates: start: 2012
  2. LOW DOSE ESTRADIOL [Concomitant]
     Indication: CONTRACEPTION
     Dosage: DAILY
  3. LOW DOSE ESTRADIOL [Concomitant]
     Indication: MENSTRUAL DISORDER

REACTIONS (3)
  - Small intestinal obstruction [Unknown]
  - Bursitis [Unknown]
  - Cyst [Unknown]
